FAERS Safety Report 4344733-4 (Version None)
Quarter: 2004Q2

REPORT INFORMATION
  Report Type: 
  Country: None (occurrence: None)
  Receive Date: 20040420
  Receipt Date: 20040408
  Transmission Date: 20050107
  Serious: Yes (Hospitalization)
  Sender: FDA-Public Use
  Company Number: 2004208379US

PATIENT
  Age: 79 Year
  Sex: Male

DRUGS (7)
  1. CELEBREX [Suspect]
     Indication: ARTHRITIS
     Dosage: 200 MG, BID, UNKNOWN
     Route: 065
     Dates: start: 20040402
  2. DELTASONE [Suspect]
     Indication: GOUT
     Dosage: UNK, UNK, UNK
     Route: 065
  3. ALTACE [Concomitant]
  4. COREG [Concomitant]
  5. FUROSEMIDE [Concomitant]
  6. ZOCOR [Concomitant]
  7. TYLENOL (CAPLET) [Concomitant]

REACTIONS (8)
  - ABDOMINAL PAIN [None]
  - CHEST PAIN [None]
  - DRUG INEFFECTIVE [None]
  - FLATULENCE [None]
  - HYPOTENSION [None]
  - INSOMNIA [None]
  - PAIN [None]
  - PULMONARY OEDEMA [None]
